FAERS Safety Report 19876683 (Version 1)
Quarter: 2021Q3

REPORT INFORMATION
  Report Type: Spontaneous
  Country: GB (occurrence: GB)
  Receive Date: 20210923
  Receipt Date: 20210923
  Transmission Date: 20211014
  Serious: Yes (Other)
  Sender: FDA-Public Use
  Company Number: NVSC2021GB212959

PATIENT
  Age: 85 Year
  Sex: Female
  Weight: 41 kg

DRUGS (6)
  1. BISOPROLOL [Concomitant]
     Active Substance: BISOPROLOL
     Indication: ILL-DEFINED DISORDER
     Dosage: 1 DF, QD (TAKE 1 DAILY)
     Route: 065
     Dates: start: 20210125
  2. CALCICHEW D3 [Concomitant]
     Active Substance: CALCIUM\CHOLECALCIFEROL
     Indication: ILL-DEFINED DISORDER
     Dosage: 1 DF, BID
     Route: 065
     Dates: start: 20210125
  3. APIXABAN [Concomitant]
     Active Substance: APIXABAN
     Indication: ILL-DEFINED DISORDER
     Dosage: UNK, (TAKE ONE TWICE DAILY)
     Route: 065
     Dates: start: 20210125
  4. OMEPRAZOLE. [Concomitant]
     Active Substance: OMEPRAZOLE
     Indication: ILL-DEFINED DISORDER
     Dosage: 1 DF, QD (ONE DAILY)
     Route: 065
     Dates: start: 20210125
  5. PENICILLIN V POTASSIUM. [Suspect]
     Active Substance: PENICILLIN V POTASSIUM
     Indication: ILL-DEFINED DISORDER
     Route: 065
     Dates: start: 20201203
  6. ALENDRONIC ACID [Concomitant]
     Active Substance: ALENDRONIC ACID
     Indication: ILL-DEFINED DISORDER
     Dosage: UNK, QW (TO BE TAKEN WEEKLY)
     Route: 065
     Dates: start: 20210125

REACTIONS (1)
  - Adverse drug reaction [Recovered/Resolved]

NARRATIVE: CASE EVENT DATE: 20210916
